FAERS Safety Report 7088858-1 (Version None)
Quarter: 2010Q4

REPORT INFORMATION
  Report Type: 
  Country: None (occurrence: None)
  Receive Date: 20101108
  Receipt Date: 20101108
  Transmission Date: 20110411
  Serious: Yes (Hospitalization, Disabling, Other)
  Sender: FDA-Public Use
  Company Number: HR-PFIZER INC-2007003579

PATIENT
  Age: 66 Year
  Sex: Male
  Weight: 86.5 kg

DRUGS (5)
  1. SUNITINIB MALATE [Suspect]
     Indication: METASTATIC RENAL CELL CARCINOMA
     Dosage: 50 MG, 1X/DAY
     Route: 048
     Dates: start: 20061117, end: 20061214
  2. SUNITINIB MALATE [Suspect]
     Dosage: 50 MG, 1X/DAY
     Route: 048
     Dates: start: 20061228, end: 20070105
  3. SUNITINIB MALATE [Suspect]
     Dosage: 50 MG, 1X/DAY
     Route: 048
     Dates: start: 20070107, end: 20070110
  4. DIAZEPAM [Concomitant]
     Dosage: ONCE
     Route: 048
     Dates: start: 20070106, end: 20070106
  5. CAFFETIN [Concomitant]
     Dosage: OCCASIONALLY
     Route: 048

REACTIONS (4)
  - CONGESTIVE CARDIOMYOPATHY [None]
  - EJECTION FRACTION DECREASED [None]
  - NOCTURNAL DYSPNOEA [None]
  - VENTRICULAR EXTRASYSTOLES [None]
